FAERS Safety Report 5039191-0 (Version None)
Quarter: 2006Q2

REPORT INFORMATION
  Report Type: 
  Country: None (occurrence: None)
  Receive Date: 20060629
  Receipt Date: 20060616
  Transmission Date: 20061013
  Serious: Yes (Death, Hospitalization)
  Sender: FDA-Public Use
  Company Number: NLWYE743019JUN06

PATIENT
  Sex: Female

DRUGS (1)
  1. ENBREL [Suspect]
     Indication: PSORIASIS
     Dates: start: 20051201

REACTIONS (3)
  - CARDIAC DISORDER [None]
  - CARDIOMYOPATHY [None]
  - GASTROINTESTINAL CARCINOMA [None]
